APPROVED DRUG PRODUCT: STERANE
Active Ingredient: PREDNISOLONE ACETATE
Strength: 25MG/ML
Dosage Form/Route: INJECTABLE;INJECTION
Application: N011446 | Product #001
Applicant: PFIZER LABORATORIES DIV PFIZER INC
Approved: Approved Prior to Jan 1, 1982 | RLD: No | RS: No | Type: DISCN